FAERS Safety Report 9278707 (Version 1)
Quarter: 2013Q2

REPORT INFORMATION
  Report Type: Spontaneous
  Country: US (occurrence: US)
  Receive Date: 20130508
  Receipt Date: 20130508
  Transmission Date: 20140414
  Serious: Yes (Other)
  Sender: FDA-Public Use
  Company Number: US-ASTRAZENECA-2013SE29791

PATIENT
  Age: 53 Year
  Sex: Female

DRUGS (7)
  1. SEROQUEL [Suspect]
     Route: 048
  2. TAMOXIFEN [Suspect]
     Indication: BREAST CANCER FEMALE
     Route: 048
  3. ELAVIL [Suspect]
     Route: 065
  4. NEURONTIN [Suspect]
     Indication: NEURALGIA
     Route: 065
  5. CYMBALTA [Suspect]
     Route: 065
  6. REQUIP [Suspect]
     Route: 065
  7. MIRAPEX [Suspect]
     Route: 065

REACTIONS (6)
  - Breast cancer [Unknown]
  - Feeling abnormal [Unknown]
  - Tic [Unknown]
  - Feeling abnormal [Unknown]
  - Weight increased [Unknown]
  - Drug ineffective [Unknown]
